FAERS Safety Report 8404344-8 (Version None)
Quarter: 2012Q2

REPORT INFORMATION
  Report Type: 
  Country: None (occurrence: None)
  Receive Date: 20120601
  Receipt Date: 20111027
  Transmission Date: 20120825
  Serious: No
  Sender: FDA-Public Use
  Company Number: US-NOVEN-11US003523

PATIENT
  Sex: Female

DRUGS (2)
  1. DAYTRANA [Suspect]
     Indication: ATTENTION DEFICIT/HYPERACTIVITY DISORDER
     Dosage: 10 MG, QD FOR 9 HOURS
     Route: 062
     Dates: start: 20110818, end: 20110801
  2. LEXAPRO [Concomitant]
     Indication: DEPRESSION
     Dosage: 1 UNK, QD
     Route: 048

REACTIONS (5)
  - APATHY [None]
  - DISTURBANCE IN ATTENTION [None]
  - DRUG INEFFECTIVE [None]
  - DRUG ADMINISTERED AT INAPPROPRIATE SITE [None]
  - APPLICATION SITE ERYTHEMA [None]
